FAERS Safety Report 13439249 (Version 1)
Quarter: 2017Q2

REPORT INFORMATION
  Report Type: Spontaneous
  Country: DE (occurrence: DE)
  Receive Date: 20170413
  Receipt Date: 20170413
  Transmission Date: 20170830
  Serious: Yes (Other)
  Sender: FDA-Public Use
  Company Number: DE-JNJFOC-20170413775

PATIENT
  Sex: Male
  Weight: 100 kg

DRUGS (1)
  1. TRAMAL [Suspect]
     Active Substance: TRAMADOL
     Indication: ABDOMINAL PAIN
     Route: 048

REACTIONS (5)
  - Road traffic accident [Recovered/Resolved]
  - Hyperhidrosis [Recovered/Resolved]
  - Euphoric mood [Recovered/Resolved]
  - Withdrawal syndrome [Recovered/Resolved]
  - Impaired driving ability [Recovered/Resolved]
